FAERS Safety Report 19946830 (Version 1)
Quarter: 2021Q4

REPORT INFORMATION
  Report Type: Report from Study
  Country: None (occurrence: BR)
  Receive Date: 20211013
  Receipt Date: 20211013
  Transmission Date: 20220303
  Serious: Yes (Hospitalization, Other)
  Sender: FDA-Public Use
  Company Number: BR-ABBVIE-21K-020-4114206-00

PATIENT
  Age: 29 Year
  Sex: Female
  Weight: 67 kg

DRUGS (3)
  1. RINVOQ [Suspect]
     Active Substance: UPADACITINIB
     Indication: Rheumatoid arthritis
     Route: 048
     Dates: start: 202106, end: 202109
  2. PREDNISONE [Concomitant]
     Active Substance: PREDNISONE
     Indication: Rheumatoid arthritis
     Dosage: UNSPECIFIC DOSE
     Route: 048
  3. CHLOROQUINE [Concomitant]
     Active Substance: CHLOROQUINE
     Indication: Rheumatoid arthritis
     Dosage: UNSPECIFIC DOSE
     Route: 048

REACTIONS (2)
  - Endometriosis [Recovered/Resolved]
  - Pain [Unknown]

NARRATIVE: CASE EVENT DATE: 20210908
